FAERS Safety Report 8450592 (Version 3)
Quarter: 2015Q1

REPORT INFORMATION
  Report Type: Report from Study
  Country: US (occurrence: US)
  Receive Date: 20120309
  Receipt Date: 20150316
  Transmission Date: 20150721
  Serious: Yes (Death)
  Sender: FDA-Public Use
  Company Number: US-ROCHE-1047020

PATIENT
  Sex: Male

DRUGS (1)
  1. XELODA [Suspect]
     Active Substance: CAPECITABINE
     Indication: MALIGNANT NEOPLASM OF THORAX
     Dosage: TAKE 7 TABS A DAY FOR 14 DAYS,THEN OFF FOR 7 DAYS
     Route: 065
     Dates: start: 20110909

REACTIONS (1)
  - Disease progression [Fatal]
